FAERS Safety Report 18014740 (Version 2)
Quarter: 2020Q3

REPORT INFORMATION
  Report Type: Spontaneous
  Country: DE (occurrence: DE)
  Receive Date: 20200713
  Receipt Date: 20200714
  Transmission Date: 20201103
  Serious: Yes (Death, Hospitalization, Other)
  Sender: FDA-Public Use
  Company Number: DE-009507513-2007DEU003578

PATIENT
  Age: 62 Year
  Sex: Male
  Weight: 80 kg

DRUGS (4)
  1. AXITINIB [Suspect]
     Active Substance: AXITINIB
     Indication: METASTATIC RENAL CELL CARCINOMA
     Route: 048
     Dates: start: 202002, end: 202005
  2. BUDESONIDE. [Concomitant]
     Active Substance: BUDESONIDE
     Dates: start: 202005
  3. PREDNISOLON [Concomitant]
     Active Substance: PREDNISOLONE
     Dates: start: 202004
  4. PEMBROLIZUMAB. [Suspect]
     Active Substance: PEMBROLIZUMAB
     Indication: METASTATIC RENAL CELL CARCINOMA
     Dosage: UNK
     Route: 051
     Dates: start: 202002, end: 202005

REACTIONS (4)
  - Drug-induced liver injury [Fatal]
  - Hepatitis [Unknown]
  - Fall [Unknown]
  - Mucosal inflammation [Recovering/Resolving]

NARRATIVE: CASE EVENT DATE: 20200430
